FAERS Safety Report 7620756-4 (Version None)
Quarter: 2011Q3

REPORT INFORMATION
  Report Type: 
  Country: None (occurrence: None)
  Receive Date: 20110719
  Receipt Date: 20110624
  Transmission Date: 20111222
  Serious: Yes (Congenital Anomaly, Other)
  Sender: FDA-Public Use
  Company Number: DE-NOVEN-11DE002574

PATIENT
  Sex: Female
  Weight: 3 kg

DRUGS (5)
  1. ANTIHYPERTENSIVES [Concomitant]
     Indication: PRODUCT USED FOR UNKNOWN INDICATION
     Dosage: UNK
  2. PAROXETINE HCL [Suspect]
     Dosage: 10 MG, QD
     Dates: start: 20090801, end: 20090901
  3. FEMIBION [Concomitant]
     Indication: PRODUCT USED FOR UNKNOWN INDICATION
  4. PAROXETINE HCL [Suspect]
     Indication: DEPRESSION
     Dosage: 20 MG, QD
     Route: 064
     Dates: start: 20090901, end: 20100317
  5. PAROXETINE HCL [Suspect]
     Dosage: 20 MG, QD
     Dates: start: 20090707, end: 20090801

REACTIONS (4)
  - MATERNAL EXPOSURE DURING PREGNANCY [None]
  - PREMATURE BABY [None]
  - HYPERBILIRUBINAEMIA NEONATAL [None]
  - HAEMANGIOMA CONGENITAL [None]
